FAERS Safety Report 7279468-1 (Version None)
Quarter: 2011Q1

REPORT INFORMATION
  Report Type: 
  Country: None (occurrence: None)
  Receive Date: 20110208
  Receipt Date: 20110124
  Transmission Date: 20110831
  Serious: No
  Sender: FDA-Public Use
  Company Number: US-BIOGENIDEC-2010BI021287

PATIENT
  Age: 50 Year
  Sex: Female

DRUGS (2)
  1. TYSABRI [Suspect]
     Indication: MULTIPLE SCLEROSIS
     Route: 042
     Dates: start: 20100610
  2. AMPYRA [Concomitant]
     Indication: BALANCE DISORDER
     Route: 048
     Dates: start: 20100504, end: 20100621

REACTIONS (9)
  - LOSS OF CONTROL OF LEGS [None]
  - PAIN [None]
  - ABDOMINAL PAIN UPPER [None]
  - MOBILITY DECREASED [None]
  - GAIT DISTURBANCE [None]
  - DEPRESSED MOOD [None]
  - BACK PAIN [None]
  - ABDOMINAL PAIN LOWER [None]
  - BALANCE DISORDER [None]
